FAERS Safety Report 7283204-2 (Version None)
Quarter: 2011Q1

REPORT INFORMATION
  Report Type: 
  Country: None (occurrence: None)
  Receive Date: 20110209
  Receipt Date: 20110127
  Transmission Date: 20110831
  Serious: Yes (Hospitalization)
  Sender: FDA-Public Use
  Company Number: PHHY2011ES07157

PATIENT
  Age: 72 Year
  Sex: Female

DRUGS (7)
  1. PROLEUKIN [Suspect]
     Indication: MALIGNANT MELANOMA STAGE IV
     Dosage: 9 MIU, UNK
     Route: 058
     Dates: start: 20101209, end: 20101211
  2. EMEND [Concomitant]
     Indication: PROPHYLAXIS
     Dosage: 125/80MG
     Route: 048
     Dates: start: 20101201, end: 20101203
  3. CARBOPLATIN [Suspect]
     Indication: MALIGNANT MELANOMA STAGE IV
     Dosage: 326 MG, UNK
     Route: 042
     Dates: start: 20101201, end: 20101201
  4. DAKTARIN [Concomitant]
     Dosage: UNK
     Route: 048
     Dates: start: 20101201, end: 20101209
  5. DACARBAZINE [Suspect]
     Indication: MALIGNANT MELANOMA STAGE IV
     Dosage: 1324 MG, UNK
     Route: 042
     Dates: start: 20101201, end: 20101201
  6. INTRON A [Suspect]
     Indication: MALIGNANT MELANOMA STAGE IV
     Dosage: 9000000 IU, UNK
     Route: 058
     Dates: start: 20101209, end: 20101211
  7. METFORMIN HCL [Concomitant]
     Indication: DIABETES MELLITUS
     Dosage: UNK
     Route: 048

REACTIONS (3)
  - PANCYTOPENIA [None]
  - RENAL FAILURE ACUTE [None]
  - PYREXIA [None]
